FAERS Safety Report 7207925-2 (Version None)
Quarter: 2011Q1

REPORT INFORMATION
  Report Type: 
  Country: None (occurrence: None)
  Receive Date: 20110104
  Receipt Date: 20101223
  Transmission Date: 20110831
  Serious: Yes (Death)
  Sender: FDA-Public Use
  Company Number: VN-JNJFOC-20101209018

PATIENT
  Age: 23 Year
  Sex: Male

DRUGS (4)
  1. AMPHOTERICIN B [Suspect]
     Indication: INFECTION
     Route: 065
  2. ITRACONAZOLE [Suspect]
     Indication: INFECTION
     Route: 065
  3. ITRACONAZOLE [Suspect]
     Indication: CRYPTOCOCCOSIS
     Route: 065
  4. AMPHOTERICIN B [Suspect]
     Indication: CRYPTOCOCCOSIS
     Route: 065

REACTIONS (2)
  - DRUG INEFFECTIVE [None]
  - ENCEPHALOPATHY [None]
